FAERS Safety Report 25310355 (Version 8)
Quarter: 2025Q4

REPORT INFORMATION
  Report Type: Spontaneous
  Country: EU (occurrence: EU)
  Receive Date: 20250514
  Receipt Date: 20251119
  Transmission Date: 20260117
  Serious: Yes (Hospitalization, Other)
  Sender: ROCHE
  Company Number: EU-002147023-NVSC2025AT074240

PATIENT
  Age: 27 Year
  Sex: Female
  Weight: 61 kg

DRUGS (10)
  1. XOLAIR [Suspect]
     Active Substance: OMALIZUMAB
     Indication: Drug hypersensitivity
     Dosage: UNK
     Route: 058
     Dates: start: 202011, end: 202206
  2. XOLAIR [Suspect]
     Active Substance: OMALIZUMAB
     Indication: Chronic spontaneous urticaria
     Dosage: UNK
     Route: 058
     Dates: start: 202011, end: 2021
  3. FLUTICASONE PROPIONATE\SALMETEROL XINAFOATE [Suspect]
     Active Substance: FLUTICASONE PROPIONATE\SALMETEROL XINAFOATE
     Indication: Product used for unknown indication
     Dosage: UNK, MDI 2X1 (SPRAY) (PUFF)
     Route: 065
  4. AMBROXOL HYDROCHLORIDE [Suspect]
     Active Substance: AMBROXOL HYDROCHLORIDE
     Indication: Product used for unknown indication
     Route: 065
     Dates: end: 20220109
  5. SERETIDE [Suspect]
     Active Substance: FLUTICASONE PROPIONATE\SALMETEROL XINAFOATE
     Indication: Lung disorder
     Route: 065
  6. PREDNISOLONE [Suspect]
     Active Substance: PREDNISOLONE
     Indication: Product used for unknown indication
     Route: 065
  7. CORTISONE [Suspect]
     Active Substance: CORTISONE
     Indication: Product used for unknown indication
     Route: 065
  8. Comirnaty [Concomitant]
     Indication: Product used for unknown indication
     Route: 058
     Dates: start: 20211217
  9. PANTOPRAZOLE [Concomitant]
     Active Substance: PANTOPRAZOLE
  10. PANTOPRAZOLE [Concomitant]
     Active Substance: PANTOPRAZOLE

REACTIONS (22)
  - Syncope [Recovering/Resolving]
  - Rash [Not Recovered/Not Resolved]
  - Swelling [Recovering/Resolving]
  - Suffocation feeling [Unknown]
  - Fatigue [Unknown]
  - Nausea [Recovering/Resolving]
  - Weight decreased [Recovering/Resolving]
  - Alopecia [Unknown]
  - Dizziness [Not Recovered/Not Resolved]
  - Cardiovascular disorder [Recovered/Resolved]
  - Off label use [Unknown]
  - Loss of consciousness [Recovered/Resolved]
  - Hypersomnia [Not Recovered/Not Resolved]
  - Visual impairment [Recovered/Resolved]
  - Hyperacusis [Not Recovered/Not Resolved]
  - Autoimmune thyroiditis [Unknown]
  - Productive cough [Recovering/Resolving]
  - Chest pain [Unknown]
  - Dyspnoea exertional [Recovering/Resolving]
  - Chest discomfort [Unknown]
  - Lung disorder [Unknown]
  - Cough [Unknown]

NARRATIVE: CASE EVENT DATE: 20210101
